FAERS Safety Report 24588738 (Version 1)
Quarter: 2024Q4

REPORT INFORMATION
  Report Type: Spontaneous
  Country: HK (occurrence: HK)
  Receive Date: 20241107
  Receipt Date: 20241107
  Transmission Date: 20250115
  Serious: Yes (Other)
  Sender: SANOFI AVENTIS
  Company Number: HK-SA-2024SA315195

PATIENT
  Age: 77 Year
  Sex: Male

DRUGS (2)
  1. DUPIXENT [Suspect]
     Active Substance: DUPILUMAB
     Indication: Asthma
     Dosage: 200 MG
  2. DUPIXENT [Suspect]
     Active Substance: DUPILUMAB
     Dosage: 300 MG
     Dates: start: 20240424

REACTIONS (4)
  - Bronchiectasis [Unknown]
  - Pneumonia pneumococcal [Unknown]
  - Pneumonia [Unknown]
  - Asthma-chronic obstructive pulmonary disease overlap syndrome [Unknown]

NARRATIVE: CASE EVENT DATE: 20240401
